FAERS Safety Report 9591690 (Version 2)
Quarter: 2017Q3

REPORT INFORMATION
  Report Type: Spontaneous
  Country: US (occurrence: US)
  Receive Date: 20131004
  Receipt Date: 20170814
  Transmission Date: 20171128
  Serious: No
  Sender: FDA-Public Use
  Company Number: US-009507513-1309USA004294

PATIENT
  Sex: Female

DRUGS (3)
  1. SINEMET [Suspect]
     Active Substance: CARBIDOPA\LEVODOPA
     Dosage: 2 DF, QD
     Route: 048
  2. SINEMET [Suspect]
     Active Substance: CARBIDOPA\LEVODOPA
     Indication: PARKINSON^S DISEASE
     Dosage: CONCENTRATION:25/100 MG, 1.5 TABLETS, 7 TIMES A DAY
     Route: 048
     Dates: start: 2007
  3. SINEMET [Suspect]
     Active Substance: CARBIDOPA\LEVODOPA
     Dosage: 9 DF, QD
     Route: 048

REACTIONS (6)
  - Drug ineffective [Unknown]
  - Overdose [Unknown]
  - Wrong technique in product usage process [Unknown]
  - Drug effect incomplete [Unknown]
  - Malaise [Unknown]
  - Product physical issue [Unknown]

NARRATIVE: CASE EVENT DATE: 2007
